FAERS Safety Report 12311191 (Version 1)
Quarter: 2016Q2

REPORT INFORMATION
  Report Type: Spontaneous
  Country: US (occurrence: US)
  Receive Date: 20160427
  Receipt Date: 20160427
  Transmission Date: 20160815
  Serious: No
  Sender: FDA-Public Use
  Company Number: US-ALKERMES INC.-ALK-2015-001106

PATIENT

DRUGS (1)
  1. VIVITROL [Suspect]
     Active Substance: NALTREXONE
     Indication: DRUG DEPENDENCE
     Dosage: 380 MG, QMO
     Route: 030
     Dates: start: 20151005

REACTIONS (9)
  - Self-injurious ideation [Unknown]
  - Depressed mood [Not Recovered/Not Resolved]
  - Vomiting [Not Recovered/Not Resolved]
  - Hallucination [Not Recovered/Not Resolved]
  - Anxiety [Not Recovered/Not Resolved]
  - Drug administration error [Recovered/Resolved]
  - Disturbance in attention [Not Recovered/Not Resolved]
  - Confusional state [Not Recovered/Not Resolved]
  - Dehydration [Not Recovered/Not Resolved]

NARRATIVE: CASE EVENT DATE: 20151005
